FAERS Safety Report 8433254-5 (Version None)
Quarter: 2012Q2

REPORT INFORMATION
  Report Type: 
  Country: None (occurrence: None)
  Receive Date: 20120613
  Receipt Date: 20120608
  Transmission Date: 20120825
  Serious: Yes (Life-Threatening, Hospitalization)
  Sender: FDA-Public Use
  Company Number: IN-PFIZER INC-2012138456

PATIENT
  Age: 24 Year
  Sex: Female

DRUGS (1)
  1. AMLODIPINE BESYLATE [Suspect]
     Indication: SUICIDAL IDEATION
     Dosage: 280 MG, UNK

REACTIONS (9)
  - OVERDOSE [None]
  - VOMITING [None]
  - TACHYCARDIA [None]
  - NAUSEA [None]
  - ABDOMINAL PAIN [None]
  - DYSPNOEA [None]
  - HYPOTENSION [None]
  - METABOLIC ACIDOSIS [None]
  - HYPERGLYCAEMIA [None]
